FAERS Safety Report 4690885-6 (Version None)
Quarter: 2005Q2

REPORT INFORMATION
  Report Type: 
  Country: None (occurrence: None)
  Receive Date: 20050613
  Receipt Date: 20050525
  Transmission Date: 20051028
  Serious: Yes (Hospitalization, Other)
  Sender: FDA-Public Use
  Company Number: 200511794BCC

PATIENT
  Age: 22 Year
  Weight: 88.4514 kg

DRUGS (3)
  1. ALEVE [Suspect]
     Dosage: ORAL A FEW MONTHS
     Route: 048
  2. IBUPROFEN [Concomitant]
  3. MUSCLE BUILDER SUPPLEMENT [Concomitant]

REACTIONS (10)
  - ALANINE AMINOTRANSFERASE INCREASED [None]
  - ASPARTATE AMINOTRANSFERASE INCREASED [None]
  - BLOOD CREATINE PHOSPHOKINASE MB INCREASED [None]
  - BLOOD LACTATE DEHYDROGENASE INCREASED [None]
  - DYSLIPIDAEMIA [None]
  - HIGH DENSITY LIPOPROTEIN DECREASED [None]
  - MITRAL VALVE INCOMPETENCE [None]
  - MYOCARDIAL INFARCTION [None]
  - PERICARDITIS [None]
  - TRICUSPID VALVE INCOMPETENCE [None]
